FAERS Safety Report 19842674 (Version 1)
Quarter: 2021Q3

REPORT INFORMATION
  Report Type: Spontaneous
  Country: US (occurrence: US)
  Receive Date: 20210915
  Receipt Date: 20210915
  Transmission Date: 20211014
  Serious: No
  Sender: FDA-Public Use
  Company Number: US-SA-2021SA302266

PATIENT
  Age: 29 Year
  Sex: Female

DRUGS (5)
  1. DUPIXENT [Suspect]
     Active Substance: DUPILUMAB
     Indication: DERMATITIS ATOPIC
     Dosage: 300 MG, QOW
     Route: 058
     Dates: start: 20210515
  2. CITALOPRAM [Concomitant]
     Active Substance: CITALOPRAM HYDROBROMIDE
  3. VYVANSE [Concomitant]
     Active Substance: LISDEXAMFETAMINE DIMESYLATE
  4. FOLIC ACID. [Concomitant]
     Active Substance: FOLIC ACID
  5. CYANOCOBALAMINE [Concomitant]
     Active Substance: CYANOCOBALAMIN

REACTIONS (3)
  - Therapeutic response shortened [Not Recovered/Not Resolved]
  - Dermatitis atopic [Not Recovered/Not Resolved]
  - Sleep disorder due to a general medical condition [Not Recovered/Not Resolved]
